FAERS Safety Report 25090335 (Version 1)
Quarter: 2025Q1

REPORT INFORMATION
  Report Type: Spontaneous
  Country: US (occurrence: US)
  Receive Date: 20250318
  Receipt Date: 20250318
  Transmission Date: 20250409
  Serious: No
  Sender: BAUSCH AND LOMB
  Company Number: US-BAUSCHBL-2025BNL004305

PATIENT
  Sex: Male

DRUGS (3)
  1. ERYTHROMYCIN [Suspect]
     Active Substance: ERYTHROMYCIN
     Indication: Dry eye
     Dosage: BOTH EYE IN THE MORNING AND IN THE EVENING
     Route: 047
  2. ERYTHROMYCIN [Suspect]
     Active Substance: ERYTHROMYCIN
     Indication: Product use in unapproved indication
  3. ARTIFICIAL TEARS [CARMELLOSE SODIUM] [Concomitant]
     Indication: Product used for unknown indication
     Dates: start: 2024

REACTIONS (3)
  - Foreign body sensation in eyes [Unknown]
  - Eye irritation [Recovering/Resolving]
  - Product use in unapproved indication [Unknown]
